FAERS Safety Report 17788301 (Version 1)
Quarter: 2020Q2

REPORT INFORMATION
  Report Type: Report from Study
  Country: CA (occurrence: CA)
  Receive Date: 20200514
  Receipt Date: 20200514
  Transmission Date: 20200714
  Serious: Yes (Other)
  Sender: FDA-Public Use
  Company Number: CA-JNJFOC-20190402909

PATIENT
  Age: 50 Year
  Sex: Female
  Weight: 80.6 kg

DRUGS (3)
  1. REMICADE [Suspect]
     Active Substance: INFLIXIMAB
     Indication: CROHN^S DISEASE
     Dosage: STRENGTH = 100 MG
     Route: 042
     Dates: start: 20130911
  2. REMICADE [Suspect]
     Active Substance: INFLIXIMAB
     Route: 042
  3. REMICADE [Suspect]
     Active Substance: INFLIXIMAB
     Route: 042

REACTIONS (10)
  - Drug level decreased [Unknown]
  - Psoriasis [Recovering/Resolving]
  - Rhinorrhoea [Unknown]
  - Infusion site pain [Unknown]
  - Psoriatic arthropathy [Recovering/Resolving]
  - Injection site bruising [Unknown]
  - Hidradenitis [Recovering/Resolving]
  - Off label use [Unknown]
  - Pustular psoriasis [Recovering/Resolving]
  - Product use issue [Unknown]

NARRATIVE: CASE EVENT DATE: 2019
